FAERS Safety Report 6803394-2 (Version None)
Quarter: 2010Q2

REPORT INFORMATION
  Report Type: 
  Country: None (occurrence: None)
  Receive Date: 20100628
  Receipt Date: 20100615
  Transmission Date: 20101027
  Serious: Yes (Hospitalization)
  Sender: FDA-Public Use
  Company Number: AU-ROCHE-709522

PATIENT
  Sex: Male
  Weight: 106 kg

DRUGS (9)
  1. VALIUM [Suspect]
     Indication: DRUG USE FOR UNKNOWN INDICATION
     Route: 065
     Dates: start: 20100512, end: 20100513
  2. ASPIRIN [Concomitant]
  3. BACLOFEN [Concomitant]
     Indication: PAIN
     Dates: start: 20100510
  4. GABAPENTIN [Concomitant]
     Indication: PAIN
     Dates: start: 20100508, end: 20100513
  5. IMOVANE [Concomitant]
  6. LYRICA [Concomitant]
  7. MIDAZOLAM HCL [Concomitant]
     Dates: start: 20100508
  8. MORPHINE [Concomitant]
     Dosage: DRUG REPORTED: MORPHINE NOS
  9. TORADOL [Concomitant]
     Indication: PAIN
     Dates: start: 20100509, end: 20100512

REACTIONS (2)
  - CONFUSIONAL STATE [None]
  - DISORIENTATION [None]
